FAERS Safety Report 8512993-1 (Version None)
Quarter: 2012Q3

REPORT INFORMATION
  Report Type: 
  Country: None (occurrence: None)
  Receive Date: 20120716
  Receipt Date: 20120709
  Transmission Date: 20120928
  Serious: Yes (Hospitalization, Other)
  Sender: FDA-Public Use
  Company Number: US-TEVA-348039USA

PATIENT
  Age: 68 Year

DRUGS (8)
  1. COTRIM [Concomitant]
     Route: 065
  2. VORICONAZOLE [Suspect]
     Indication: ANTIFUNGAL PROPHYLAXIS
     Dosage: RECEIVED 12H APART IMMEDIATELY AFTER TRANSPLANT; THEN 200MG TWICE DAILY
     Route: 042
  3. VORICONAZOLE [Suspect]
     Route: 065
  4. TACROLIMUS [Suspect]
     Indication: IMMUNOSUPPRESSANT DRUG THERAPY
     Route: 065
  5. MYCOPHENOLATE MOFETIL [Concomitant]
     Indication: IMMUNOSUPPRESSANT DRUG THERAPY
     Route: 065
  6. PREDNISONE [Concomitant]
     Indication: IMMUNOSUPPRESSANT DRUG THERAPY
     Dosage: (LOW-DOSE) 5MG
     Route: 065
  7. VALGANCICLOVIR [Concomitant]
     Route: 065
  8. ALEMTUZUMAB [Concomitant]
     Indication: IMMUNOSUPPRESSANT DRUG THERAPY
     Route: 065

REACTIONS (1)
  - NEUROTOXICITY [None]
